FAERS Safety Report 15578175 (Version 2)
Quarter: 2019Q1

REPORT INFORMATION
  Report Type: Spontaneous
  Country: US (occurrence: US)
  Receive Date: 20181102
  Receipt Date: 20190318
  Transmission Date: 20190417
  Serious: No
  Sender: FDA-Public Use
  Company Number: US-HORIZON-ACT-0334-2018

PATIENT
  Age: 30 Year
  Sex: Female

DRUGS (3)
  1. ACTIMMUNE [Suspect]
     Active Substance: INTERFERON GAMMA-1B
     Indication: CHRONIC GRANULOMATOUS DISEASE
     Dosage: 75 ?G (0.3 ML) THREE TIMES A WEEK
     Dates: start: 20151026
  2. BACTRIM [Concomitant]
     Active Substance: SULFAMETHOXAZOLE\TRIMETHOPRIM
  3. SPORANOX [Concomitant]
     Active Substance: ITRACONAZOLE

REACTIONS (2)
  - Injection site pain [Recovered/Resolved]
  - Influenza like illness [Recovered/Resolved]
